FAERS Safety Report 25585793 (Version 1)
Quarter: 2025Q3

REPORT INFORMATION
  Report Type: Spontaneous
  Country: US (occurrence: None)
  Receive Date: 20250718
  Receipt Date: 20250718
  Transmission Date: 20251020
  Serious: Yes (Other)
  Sender: FDA-CTU
  Company Number: None

PATIENT
  Age: 45 Year
  Sex: Female
  Weight: 60.75 kg

DRUGS (4)
  1. BIEST 2.5 ESTROGEN CREAM [Suspect]
     Active Substance: ESTRADIOL\ESTRIOL
     Indication: Menopausal symptoms
     Dosage: FREQUENCY : DAILY;?
  2. BIEST 5.0 ESTROGEN CREAM [Suspect]
     Active Substance: ESTRADIOL\ESTRIOL
  3. P25 PROGESTERONE CREAM [Suspect]
     Active Substance: PROGESTERONE
  4. P50 PROGESTERONE CREAM [Suspect]
     Active Substance: PROGESTERONE

REACTIONS (4)
  - Endometrial cancer [None]
  - Vaginal haemorrhage [None]
  - Endometrial hyperplasia [None]
  - Product communication issue [None]

NARRATIVE: CASE EVENT DATE: 20250717
